FAERS Safety Report 25092399 (Version 1)
Quarter: 2025Q1

REPORT INFORMATION
  Report Type: Spontaneous
  Country: NL (occurrence: NL)
  Receive Date: 20250319
  Receipt Date: 20250319
  Transmission Date: 20250409
  Serious: Yes (Hospitalization, Other)
  Sender: AMGEN
  Company Number: NL-AMGEN-NLDSP2025047768

PATIENT

DRUGS (7)
  1. PANITUMUMAB [Suspect]
     Active Substance: PANITUMUMAB
     Indication: Gastrointestinal carcinoma
     Route: 065
  2. BEVACIZUMAB [Suspect]
     Active Substance: BEVACIZUMAB
     Indication: Gastrointestinal carcinoma
     Route: 065
  3. FLUOROURACIL [Suspect]
     Active Substance: FLUOROURACIL
     Indication: Product used for unknown indication
     Dosage: 400 MILLIGRAM/SQ. METER, Q2WK, 15-MIN BOLUS INJECTION
     Route: 040
  4. LEUCOVORIN [Concomitant]
     Active Substance: LEUCOVORIN\LEUCOVORIN CALCIUM
     Route: 040
  5. OXALIPLATIN [Concomitant]
     Active Substance: OXALIPLATIN
     Route: 040
  6. IRINOTECAN [Concomitant]
     Active Substance: IRINOTECAN
     Route: 040
  7. CAPECITABINE [Concomitant]
     Active Substance: CAPECITABINE
     Route: 048

REACTIONS (16)
  - Systemic toxicity [Unknown]
  - Thrombocytopenia [Unknown]
  - Myelosuppression [Unknown]
  - Angina pectoris [Unknown]
  - Neutropenia [Unknown]
  - Leukopenia [Unknown]
  - Nausea [Unknown]
  - Vomiting [Unknown]
  - Mucosal inflammation [Unknown]
  - Anaemia [Unknown]
  - Diarrhoea [Unknown]
  - Haematotoxicity [Unknown]
  - Gastrointestinal toxicity [Unknown]
  - Dysgeusia [Unknown]
  - Epistaxis [Unknown]
  - Fatigue [Unknown]
